FAERS Safety Report 6383065-X (Version None)
Quarter: 2009Q3

REPORT INFORMATION
  Report Type: 
  Country: None (occurrence: None)
  Receive Date: 20090930
  Receipt Date: 20090925
  Transmission Date: 20100115
  Serious: No
  Sender: FDA-Public Use
  Company Number: US-GILEAD-2009-0024071

PATIENT
  Sex: Male

DRUGS (1)
  1. LETAIRIS [Suspect]
     Indication: PULMONARY ARTERIAL HYPERTENSION
     Route: 048
     Dates: start: 20090723

REACTIONS (3)
  - HYPERSENSITIVITY [None]
  - OEDEMA [None]
  - WEIGHT INCREASED [None]
